FAERS Safety Report 22142606 (Version 1)
Quarter: 2023Q1

REPORT INFORMATION
  Report Type: Spontaneous
  Country: US (occurrence: US)
  Receive Date: 20230327
  Receipt Date: 20230327
  Transmission Date: 20230418
  Serious: Yes (Hospitalization)
  Sender: FDA-Public Use
  Company Number: US-SA-2023SA091697

PATIENT
  Age: 55 Year
  Sex: Male

DRUGS (2)
  1. LOVENOX [Suspect]
     Active Substance: ENOXAPARIN SODIUM
     Indication: Product used for unknown indication
     Dosage: UNK
  2. CABOZANTINIB [Suspect]
     Active Substance: CABOZANTINIB
     Indication: Renal cancer
     Dosage: 40 MG, QD
     Route: 048

REACTIONS (4)
  - Haematoma muscle [Unknown]
  - Nerve compression [Recovering/Resolving]
  - Blood pressure increased [Not Recovered/Not Resolved]
  - Stomatitis [Recovered/Resolved]
